FAERS Safety Report 8170059-7 (Version None)
Quarter: 2012Q1

REPORT INFORMATION
  Report Type: 
  Country: None (occurrence: None)
  Receive Date: 20120104
  Receipt Date: 20111128
  Transmission Date: 20120608
  Serious: No
  Sender: FDA-Public Use
  Company Number: 2011HGS-002864

PATIENT
  Sex: Female
  Weight: 63.5036 kg

DRUGS (8)
  1. FLAXSEED SUPPLEMENT (LINUM USITATISSIMUM SEED OIL) (LINUM USITATISSIMU [Concomitant]
  2. FISH OIL (FISH OIL) (FISH OIL) [Concomitant]
  3. CALCIUM PLUS VITAMIN D (CALCIUM WITH VITAMIN D) (ERGOCALCIFEROL, CALCI [Concomitant]
  4. PLAQUENIL (HYDROXYCHLOROQUINE) (HYDROXYCHLOROQUINE SULFATE) [Concomitant]
  5. SYNTHROID (LEVOTHYROXINE SODIUM) (LEVOTHYROXINE SODIUM) [Concomitant]
  6. BENLYSTA [Suspect]
     Indication: SYSTEMIC LUPUS ERYTHEMATOSUS
     Dosage: 1 IN 28 D, INTRAVENOUS DRIP
     Route: 041
     Dates: start: 20110923
  7. PREDNISONE [Concomitant]
  8. OMEPRAZOLE [Concomitant]

REACTIONS (2)
  - MENSTRUATION IRREGULAR [None]
  - ALOPECIA [None]
